FAERS Safety Report 10083726 (Version 1)
Quarter: 2014Q2

REPORT INFORMATION
  Report Type: Spontaneous
  Country: US (occurrence: US)
  Receive Date: 20140417
  Receipt Date: 20140417
  Transmission Date: 20141212
  Serious: Yes (Other)
  Sender: FDA-Public Use
  Company Number: US-BAYER-2014-055228

PATIENT
  Age: 59 Year
  Sex: Male

DRUGS (2)
  1. ALEVE TABLET [Suspect]
     Indication: ANALGESIC THERAPY
     Dosage: 2 DF, QD
     Route: 048
  2. ALEVE TABLET [Suspect]
     Indication: ARTHRALGIA

REACTIONS (2)
  - Pharyngeal oedema [Recovered/Resolved]
  - Incorrect drug administration duration [None]
